FAERS Safety Report 4881876-0 (Version None)
Quarter: 2006Q1

REPORT INFORMATION
  Report Type: 
  Country: None (occurrence: None)
  Receive Date: 20060117
  Receipt Date: 20060103
  Transmission Date: 20060701
  Serious: Yes (Death)
  Sender: FDA-Public Use
  Company Number: IL-JNJFOC-20060102457

PATIENT
  Age: 33 Year
  Sex: Female

DRUGS (2)
  1. HALDOL [Suspect]
     Indication: SCHIZOAFFECTIVE DISORDER
  2. VENLAFAXINE HCL [Concomitant]

REACTIONS (1)
  - COMPLETED SUICIDE [None]
